FAERS Safety Report 17434928 (Version 1)
Quarter: 2020Q1

REPORT INFORMATION
  Report Type: Spontaneous
  Country: US (occurrence: US)
  Receive Date: 20200218
  Receipt Date: 20200218
  Transmission Date: 20200409
  Serious: Yes (Hospitalization)
  Sender: FDA-Public Use
  Company Number: None

PATIENT
  Age: 62 Year
  Sex: Male

DRUGS (5)
  1. HUMIRA [Suspect]
     Active Substance: ADALIMUMAB
     Indication: PSORIASIS
     Dosage: ?          OTHER FREQUENCY:EVERY 14 DAYS;?
     Route: 058
     Dates: start: 20170902
  2. OTEZLA [Suspect]
     Active Substance: APREMILAST
     Dates: start: 20190916
  3. ZOLPIDEM [Suspect]
     Active Substance: ZOLPIDEM TARTRATE
  4. DULOXETINE. [Concomitant]
     Active Substance: DULOXETINE
     Dates: start: 20200218
  5. TYLENOL [Concomitant]
     Active Substance: ACETAMINOPHEN
     Dates: start: 20191223

REACTIONS (4)
  - Infection [None]
  - Dry skin [None]
  - Pain [None]
  - Spinal cord infection [None]
